FAERS Safety Report 8353495-5 (Version None)
Quarter: 2012Q2

REPORT INFORMATION
  Report Type: 
  Country: None (occurrence: None)
  Receive Date: 20120511
  Receipt Date: 20110418
  Transmission Date: 20120825
  Serious: No
  Sender: FDA-Public Use
  Company Number: US-GLAXOSMITHKLINE-A0924212A

PATIENT
  Sex: Female

DRUGS (2)
  1. XELODA [Suspect]
     Indication: PRODUCT USED FOR UNKNOWN INDICATION
     Dates: start: 20110403
  2. TYKERB [Suspect]
     Indication: PRODUCT USED FOR UNKNOWN INDICATION
     Dosage: 1250MG PER DAY
     Route: 048
     Dates: start: 20110403

REACTIONS (10)
  - DRY SKIN [None]
  - NAUSEA [None]
  - FAECES HARD [None]
  - OEDEMA PERIPHERAL [None]
  - BLISTER [None]
  - CHEST PAIN [None]
  - ERYTHEMA [None]
  - PAIN IN EXTREMITY [None]
  - VOMITING [None]
  - CONSTIPATION [None]
